FAERS Safety Report 4308499-6 (Version None)
Quarter: 2004Q1

REPORT INFORMATION
  Report Type: 
  Country: None (occurrence: None)
  Receive Date: 20040301
  Receipt Date: 20031121
  Transmission Date: 20041129
  Serious: Yes (Death, Life-Threatening, Hospitalization, Other)
  Sender: FDA-Public Use
  Company Number: PHRM2003FR03097

PATIENT
  Age: 3 Week
  Sex: Male
  Weight: 1 kg

DRUGS (3)
  1. AREDIA [Suspect]
     Indication: HYPERCALCAEMIA
     Dosage: .4 MG, ONCE/SINGLE
     Route: 042
     Dates: start: 20030920, end: 20030920
  2. CUROSURF [Suspect]
     Dosage: 1 DF, QD
     Route: 042
     Dates: start: 20030909, end: 20030910
  3. IBUPROFEN [Suspect]
     Route: 042
     Dates: start: 20030917, end: 20030919

REACTIONS (35)
  - ANAEMIA [None]
  - ANAEMIA NEONATAL [None]
  - ANURIA [None]
  - ASCITES [None]
  - BLOOD BILIRUBIN INCREASED [None]
  - BLOOD CREATININE INCREASED [None]
  - BLOOD UREA INCREASED [None]
  - BRONCHOPULMONARY DYSPLASIA [None]
  - CEREBRAL HAEMORRHAGE NEONATAL [None]
  - CHOLESTASIS [None]
  - DEATH [None]
  - DEATH NEONATAL [None]
  - ELECTROENCEPHALOGRAM ABNORMAL [None]
  - ELECTROLYTE IMBALANCE [None]
  - GASTROINTESTINAL DISORDER [None]
  - HAEMODYNAMIC INSTABILITY [None]
  - HEPATIC CONGESTION [None]
  - HEPATIC FAILURE [None]
  - HYPERCAPNIA [None]
  - HYPERKALAEMIA [None]
  - HYPERNATRAEMIA [None]
  - HYPOGLYCAEMIA NEONATAL [None]
  - HYPOMAGNESAEMIA [None]
  - HYPOPHOSPHATAEMIA [None]
  - JAUNDICE NEONATAL [None]
  - NEONATAL HEPATOMEGALY [None]
  - NEONATAL HYPONATRAEMIA [None]
  - NEONATAL HYPOTENSION [None]
  - PATENT DUCTUS ARTERIOSUS [None]
  - PULMONARY HAEMORRHAGE [None]
  - RENAL FAILURE NEONATAL [None]
  - RENAL INFARCT [None]
  - RENAL INTERSTITIAL FIBROSIS [None]
  - RENAL TUBULAR NECROSIS [None]
  - THROMBOCYTOPENIA NEONATAL [None]
